FAERS Safety Report 8013809-2 (Version None)
Quarter: 2011Q4

REPORT INFORMATION
  Report Type: 
  Country: None (occurrence: None)
  Receive Date: 20111229
  Receipt Date: 20111216
  Transmission Date: 20120403
  Serious: Yes (Hospitalization)
  Sender: FDA-Public Use
  Company Number: PHHY2011FR099221

PATIENT
  Sex: Female
  Weight: 63 kg

DRUGS (6)
  1. PLAVIX [Concomitant]
  2. IMATINIB MESYLATE [Suspect]
     Indication: CHRONIC MYELOID LEUKAEMIA
     Dosage: 400 MG,DAILY
     Dates: start: 20110630
  3. ASPIRIN [Concomitant]
  4. ATACAND [Concomitant]
  5. SIMVASTATIN [Concomitant]
  6. RABEPRAZOLE SODIUM [Concomitant]

REACTIONS (3)
  - ARTERITIS [None]
  - VASCULAR OCCLUSION [None]
  - THROMBOSIS [None]
